FAERS Safety Report 8140108-0 (Version None)
Quarter: 2012Q1

REPORT INFORMATION
  Report Type: 
  Country: None (occurrence: None)
  Receive Date: 20120216
  Receipt Date: 20120207
  Transmission Date: 20120608
  Serious: Yes (Other)
  Sender: FDA-Public Use
  Company Number: US-BRISTOL-MYERS SQUIBB COMPANY-16387904

PATIENT
  Age: 92 Year
  Sex: Male
  Weight: 77 kg

DRUGS (3)
  1. COUMADIN [Suspect]
     Indication: PULMONARY EMBOLISM
     Dates: start: 20110101, end: 20110101
  2. FINASTERIDE [Concomitant]
  3. PERCOCET [Suspect]

REACTIONS (4)
  - CELLULITIS [None]
  - WEIGHT INCREASED [None]
  - VASCULITIS [None]
  - DYSPNOEA [None]
